FAERS Safety Report 8476538-7 (Version None)
Quarter: 2012Q2

REPORT INFORMATION
  Report Type: 
  Country: None (occurrence: None)
  Receive Date: 20120628
  Receipt Date: 20120621
  Transmission Date: 20120825
  Serious: Yes (Disabling, Other)
  Sender: FDA-Public Use
  Company Number: NL-JNJFOC-20120405071

PATIENT
  Sex: Male

DRUGS (5)
  1. RIVAROXABAN [Suspect]
     Indication: KNEE ARTHROPLASTY
     Route: 048
     Dates: start: 20110224
  2. RIVAROXABAN [Suspect]
     Route: 048
     Dates: start: 20110210, end: 20110222
  3. RIVAROXABAN [Suspect]
     Indication: THROMBOSIS PROPHYLAXIS
     Route: 048
     Dates: start: 20110210, end: 20110222
  4. RIVAROXABAN [Suspect]
     Route: 048
     Dates: start: 20110224
  5. FRAXIPARINE [Concomitant]
     Dates: start: 20110207, end: 20110201

REACTIONS (2)
  - ARTHROFIBROSIS [None]
  - HAEMORRHAGE [None]
